FAERS Safety Report 12223333 (Version 1)
Quarter: 2016Q1

REPORT INFORMATION
  Report Type: Report from Study
  Country: CN (occurrence: CN)
  Receive Date: 20160330
  Receipt Date: 20160330
  Transmission Date: 20160526
  Serious: Yes (Other)
  Sender: FDA-Public Use
  Company Number: CN-BAXALTA-2016BLT001836

PATIENT
  Age: 3 Year

DRUGS (2)
  1. HUMAN COAGULATION FACTOR VIII (RDNA) [Suspect]
     Active Substance: ANTIHEMOPHILIC FACTOR, HUMAN RECOMBINANT
     Indication: CEREBRAL HAEMORRHAGE
  2. HUMAN COAGULATION FACTOR VIII (RDNA) [Suspect]
     Active Substance: ANTIHEMOPHILIC FACTOR, HUMAN RECOMBINANT
     Indication: FACTOR VIII DEFICIENCY
     Dosage: UNK, FOR 3 DAYS
     Route: 042
     Dates: start: 2014

REACTIONS (2)
  - Factor VIII inhibition [Unknown]
  - Haemarthrosis [Unknown]

NARRATIVE: CASE EVENT DATE: 201603
